FAERS Safety Report 24604075 (Version 5)
Quarter: 2025Q3

REPORT INFORMATION
  Report Type: Report from Study
  Country: EU (occurrence: EU)
  Receive Date: 20241111
  Receipt Date: 20250801
  Transmission Date: 20251020
  Serious: Yes (Other)
  Sender: PFIZER
  Company Number: EU-TAKEDA-2022TUS045471

PATIENT
  Age: 34 Year
  Sex: Male
  Weight: 94 kg

DRUGS (2)
  1. ADCETRIS [Suspect]
     Active Substance: BRENTUXIMAB VEDOTIN
     Indication: Cutaneous T-cell lymphoma
     Dosage: 150 MILLIGRAM, Q3WEEKS
     Route: 042
     Dates: start: 20210205
  2. ADCETRIS [Suspect]
     Active Substance: BRENTUXIMAB VEDOTIN
     Dosage: 183.6 MILLIGRAM, Q3WEEKS
     Route: 048
     Dates: end: 20211223

REACTIONS (4)
  - Polyneuropathy [Unknown]
  - Arachnoid cyst [Recovering/Resolving]
  - Snapping hip syndrome [Not Recovered/Not Resolved]
  - Off label use [Unknown]

NARRATIVE: CASE EVENT DATE: 20210205
